FAERS Safety Report 10885455 (Version 1)
Quarter: 2015Q1

REPORT INFORMATION
  Report Type: Spontaneous
  Country: EE (occurrence: EE)
  Receive Date: 20150304
  Receipt Date: 20150304
  Transmission Date: 20150721
  Serious: Yes (Life-Threatening, Hospitalization, Disabling)
  Sender: FDA-Public Use
  Company Number: EE-ASTRAZENECA-2015SE19041

PATIENT
  Age: 23031 Day
  Sex: Male
  Weight: 70 kg

DRUGS (7)
  1. BERODUAL N [Concomitant]
     Active Substance: FENOTEROL HYDROBROMIDE\IPRATROPIUM BROMIDE
  2. FLOSIN [Concomitant]
  3. ROSUVASTATIN [Concomitant]
     Active Substance: ROSUVASTATIN
  4. BRILIQUE [Suspect]
     Active Substance: TICAGRELOR
     Indication: ACUTE CORONARY SYNDROME
     Route: 048
     Dates: start: 20150129, end: 20150204
  5. ASPIRIN. [Concomitant]
     Active Substance: ASPIRIN
  6. SERETIDE [Concomitant]
     Active Substance: FLUTICASONE FUROATE\SALMETEROL XINAFOATE
  7. BETALOC [Concomitant]
     Active Substance: METOPROLOL TARTRATE

REACTIONS (2)
  - Cerebral haemorrhage [Recovered/Resolved with Sequelae]
  - Visual acuity reduced transiently [Recovered/Resolved with Sequelae]

NARRATIVE: CASE EVENT DATE: 20150129
